FAERS Safety Report 5426297-7 (Version None)
Quarter: 2007Q3

REPORT INFORMATION
  Report Type: 
  Country: None (occurrence: None)
  Receive Date: 20070827
  Receipt Date: 20070816
  Transmission Date: 20080115
  Serious: Yes (Disabling)
  Sender: FDA-Public Use
  Company Number: TH-ROCHE-510661

PATIENT
  Age: 64 Year
  Sex: Male
  Weight: 38.9 kg

DRUGS (8)
  1. ENFUVIRTIDE [Suspect]
     Indication: HIV INFECTION
     Route: 058
     Dates: start: 20060124
  2. INDINAVIR [Concomitant]
     Dates: start: 20040721
  3. RITONAVIR [Concomitant]
     Dates: start: 20040721
  4. ABACAVIR [Concomitant]
     Dates: start: 20060829
  5. LAMIVUDINE [Concomitant]
     Dates: start: 20010411
  6. BACTRIM [Concomitant]
     Dates: start: 20010101
  7. FENOFIBRATE [Concomitant]
     Dates: start: 20070320
  8. 1 CONCOMITANT DRUG [Concomitant]
     Dosage: DRUG NAME REPORTED AS STC
     Dates: start: 20010411

REACTIONS (2)
  - GLOMERULONEPHRITIS PROLIFERATIVE [None]
  - PROTEINURIA [None]
